FAERS Safety Report 14815666 (Version 4)
Quarter: 2018Q2

REPORT INFORMATION
  Report Type: Spontaneous
  Country: US (occurrence: US)
  Receive Date: 20180426
  Receipt Date: 20180628
  Transmission Date: 20180711
  Serious: Yes (Hospitalization)
  Sender: FDA-Public Use
  Company Number: US-OTSUKA-2018_009579

PATIENT
  Sex: Female
  Weight: 104.76 kg

DRUGS (11)
  1. TOPAMAX [Suspect]
     Active Substance: TOPIRAMATE
     Indication: PRODUCT USED FOR UNKNOWN INDICATION
     Dosage: 50 MG, UNK
     Route: 065
  2. SIMVASTATIN. [Concomitant]
     Active Substance: SIMVASTATIN
     Indication: BLOOD CHOLESTEROL INCREASED
     Dosage: 40 MG, UNK
     Route: 065
  3. VITAMIN D [Concomitant]
     Active Substance: CHOLECALCIFEROL
     Indication: HEART RATE INCREASED
     Dosage: 1 DF, UNK
     Route: 065
  4. ABILIFY [Suspect]
     Active Substance: ARIPIPRAZOLE
     Indication: BIPOLAR I DISORDER
     Dosage: UNK (LOW DOSE)
     Route: 048
  5. LISINOPRIL. [Concomitant]
     Active Substance: LISINOPRIL
     Indication: HYPERTENSION
     Dosage: 40 MG, UNK
     Route: 065
  6. DILTIAZEM. [Concomitant]
     Active Substance: DILTIAZEM
     Indication: HEART RATE ABNORMAL
     Dosage: 180 MG, UNK
     Route: 065
  7. ABILIFY MAINTENA [Suspect]
     Active Substance: ARIPIPRAZOLE
     Indication: BIPOLAR I DISORDER
     Dosage: 400 MG, QM
     Route: 030
     Dates: start: 201803
  8. KLONOPIN [Concomitant]
     Active Substance: CLONAZEPAM
     Indication: PRODUCT USED FOR UNKNOWN INDICATION
     Dosage: 1 MG, UNK
     Route: 065
  9. ABILIFY [Suspect]
     Active Substance: ARIPIPRAZOLE
     Dosage: 20 MG, UNK
     Route: 065
  10. TOPAMAX [Suspect]
     Active Substance: TOPIRAMATE
     Dosage: 100 MG, UNK
     Route: 065
  11. AMBIEN [Concomitant]
     Active Substance: ZOLPIDEM TARTRATE
     Indication: INSOMNIA
     Dosage: 10 MG, UNK (AS NEEDED)
     Route: 065

REACTIONS (17)
  - Hypertension [Recovered/Resolved]
  - Speech disorder [Not Recovered/Not Resolved]
  - Mental disorder [Recovered/Resolved]
  - Hunger [Not Recovered/Not Resolved]
  - Drug dose omission [Unknown]
  - Tachyphrenia [Unknown]
  - Obesity [Recovering/Resolving]
  - Sleep disorder [Unknown]
  - Weight decreased [Unknown]
  - Joint swelling [Unknown]
  - Fatigue [Unknown]
  - Crying [Unknown]
  - Adverse event [Unknown]
  - Blood cholesterol increased [Unknown]
  - Anxiety [Unknown]
  - Paraesthesia [Not Recovered/Not Resolved]
  - Treatment noncompliance [Unknown]
